FAERS Safety Report 8180862-5 (Version None)
Quarter: 2012Q1

REPORT INFORMATION
  Report Type: 
  Country: None (occurrence: None)
  Receive Date: 20120301
  Receipt Date: 20120301
  Transmission Date: 20120608
  Serious: Yes (Life-Threatening)
  Sender: FDA-Public Use
  Company Number: None

PATIENT
  Age: 57 Year
  Sex: Female
  Weight: 87.9978 kg

DRUGS (1)
  1. IC ROPINIROLE HCL 4MG HERITAGE PHARMA [Suspect]
     Indication: RESTLESS LEGS SYNDROME
     Dosage: 4MG 1 TAB @ HS PO
     Route: 048
     Dates: start: 20111208, end: 20111215

REACTIONS (5)
  - VOMITING PROJECTILE [None]
  - SALIVARY HYPERSECRETION [None]
  - PANIC REACTION [None]
  - DYSPNOEA [None]
  - ABDOMINAL PAIN UPPER [None]
